FAERS Safety Report 4700019-7 (Version None)
Quarter: 2005Q2

REPORT INFORMATION
  Report Type: 
  Country: None (occurrence: None)
  Receive Date: 20050623
  Receipt Date: 20050609
  Transmission Date: 20051028
  Serious: Yes (Hospitalization, Other)
  Sender: FDA-Public Use
  Company Number: 200313266BCC

PATIENT
  Age: 76 Year
  Sex: Male
  Weight: 79.3795 kg

DRUGS (7)
  1. ALEVE [Suspect]
     Indication: DEMENTIA ALZHEIMER'S TYPE
     Dosage: BID, ORAL
     Route: 048
     Dates: start: 20020923, end: 20030628
  2. ALEVE [Suspect]
     Indication: DEMENTIA ALZHEIMER'S TYPE
     Dosage: BID, ORAL
     Route: 048
     Dates: start: 20030702, end: 20030715
  3. METOPROLOL [Concomitant]
     Indication: PROPHYLAXIS
  4. ZOCOR [Concomitant]
  5. MULTI-VITAMIN [Concomitant]
  6. MSM WITH GLUCOSAMINE [Concomitant]
  7. ASPIRIN [Concomitant]

REACTIONS (9)
  - ANGINA PECTORIS [None]
  - BLOOD BILIRUBIN INCREASED [None]
  - BLOOD CHOLESTEROL INCREASED [None]
  - BLOOD PRESSURE INCREASED [None]
  - CORONARY ARTERY OCCLUSION [None]
  - DYSPNOEA [None]
  - HEART RATE DECREASED [None]
  - POLLAKIURIA [None]
  - PYREXIA [None]
